FAERS Safety Report 11238330 (Version 2)
Quarter: 2024Q3

REPORT INFORMATION
  Report Type: Spontaneous
  Country: US (occurrence: US)
  Receive Date: 20150704
  Receipt Date: 20240715
  Transmission Date: 20241017
  Serious: Yes (Hospitalization, Other)
  Sender: AUROBINDO
  Company Number: US-AUROBINDO-AUR-APL-2015-05700

PATIENT
  Age: 3 Month

DRUGS (1)
  1. SILDENAFIL [Suspect]
     Active Substance: SILDENAFIL
     Indication: Lymphatic disorder
     Dosage: 0.5 MILLIGRAM/KILOGRAM, 3 TIMES A DAY
     Route: 065

REACTIONS (5)
  - Cellulitis [Unknown]
  - Condition aggravated [Unknown]
  - Infection [Unknown]
  - Off label use [Unknown]
  - Drug ineffective for unapproved indication [Unknown]
